FAERS Safety Report 6131241-3 (Version None)
Quarter: 2009Q1

REPORT INFORMATION
  Report Type: 
  Country: None (occurrence: None)
  Receive Date: 20090325
  Receipt Date: 20080428
  Transmission Date: 20090719
  Serious: Yes (Other)
  Sender: FDA-Public Use
  Company Number: US-BRISTOL-MYERS SQUIBB COMPANY-14061444

PATIENT
  Age: 49 Year
  Sex: Male
  Weight: 82 kg

DRUGS (4)
  1. ERBITUX [Suspect]
     Indication: HEAD AND NECK CANCER
     Dosage: ONE DOSE INFUSED OVER 2 HOURS.
     Route: 042
     Dates: start: 20080130, end: 20080130
  2. BENADRYL [Concomitant]
     Indication: PREMEDICATION
     Route: 042
     Dates: start: 20080130
  3. SINGULAIR [Concomitant]
     Route: 048
  4. PROTONIX [Concomitant]

REACTIONS (1)
  - TREMOR [None]
